FAERS Safety Report 17038720 (Version 2)
Quarter: 2020Q1

REPORT INFORMATION
  Report Type: Report from Study
  Country: DE (occurrence: DE)
  Receive Date: 20191115
  Receipt Date: 20200117
  Transmission Date: 20200409
  Serious: Yes (Death, Hospitalization, Other)
  Sender: FDA-Public Use
  Company Number: PHHY2018DE028719

PATIENT
  Sex: Male
  Weight: 62 kg

DRUGS (2)
  1. VOTRIENT [Suspect]
     Active Substance: PAZOPANIB HYDROCHLORIDE
     Indication: METASTATIC RENAL CELL CARCINOMA
     Dosage: 800 MG, QD
     Route: 048
     Dates: start: 20170413, end: 20170520
  2. VOTRIENT [Suspect]
     Active Substance: PAZOPANIB HYDROCHLORIDE
     Dosage: 400 MG, QD
     Route: 048
     Dates: start: 20170613, end: 20170704

REACTIONS (9)
  - Infection [Recovered/Resolved]
  - Urinary incontinence [Unknown]
  - Malignant neoplasm progression [Fatal]
  - Pneumonia [Recovering/Resolving]
  - Dehydration [Recovered/Resolved]
  - Asthenia [Unknown]
  - Pyrexia [Unknown]
  - Metastatic renal cell carcinoma [Fatal]
  - Fall [Unknown]

NARRATIVE: CASE EVENT DATE: 20170521
